FAERS Safety Report 22216611 (Version 1)
Quarter: 2023Q2

REPORT INFORMATION
  Report Type: Spontaneous
  Country: FR (occurrence: FR)
  Receive Date: 20230417
  Receipt Date: 20230417
  Transmission Date: 20230722
  Serious: Yes (Death, Other)
  Sender: FDA-Public Use
  Company Number: FR-INCYTE CORPORATION-2023IN003035

PATIENT

DRUGS (2)
  1. TAFASITAMAB [Suspect]
     Active Substance: TAFASITAMAB
     Indication: Diffuse large B-cell lymphoma
     Dosage: 1120 MILLIGRAM, 1 COURSE ADMINISTERED (DAY1, DAY4, DAY8, DAY15, DAY22),
     Route: 042
     Dates: end: 20221221
  2. BISOPROLOL [Concomitant]
     Active Substance: BISOPROLOL
     Indication: Cardiomyopathy
     Dosage: UNK
     Route: 065
     Dates: start: 20120101

REACTIONS (2)
  - Diffuse large B-cell lymphoma refractory [Fatal]
  - Disease progression [Fatal]
